FAERS Safety Report 10460598 (Version 1)
Quarter: 2014Q3

REPORT INFORMATION
  Report Type: Spontaneous
  Country: FR (occurrence: FR)
  Receive Date: 20140918
  Receipt Date: 20140918
  Transmission Date: 20150326
  Serious: Yes (Hospitalization)
  Sender: FDA-Public Use
  Company Number: FR-ASTRAZENECA-2014SE69272

PATIENT
  Age: 27878 Day
  Sex: Male

DRUGS (7)
  1. HYTACAND [Suspect]
     Active Substance: CANDESARTAN CILEXETIL\HYDROCHLOROTHIAZIDE
     Indication: HYPERTENSION
     Dosage: 8 MG/12.5 MG, HALF DOSAGE FORM EVERY DAY
     Route: 048
     Dates: start: 2002, end: 20140716
  2. LANZOR [Concomitant]
     Active Substance: LANSOPRAZOLE
  3. PROPRANOLOL [Concomitant]
     Active Substance: PROPRANOLOL\PROPRANOLOL HYDROCHLORIDE
  4. SERETIDE [Concomitant]
     Active Substance: FLUTICASONE FUROATE\SALMETEROL XINAFOATE
  5. CIPRALAN [Concomitant]
     Active Substance: CIFENLINE SUCCINATE
  6. DEBRIDAT [Concomitant]
     Active Substance: TRIMEBUTINE MALEATE
  7. XYZALL [Concomitant]
     Active Substance: LEVOCETIRIZINE DIHYDROCHLORIDE

REACTIONS (3)
  - Hypercalcaemia [Recovered/Resolved]
  - Renal failure [Recovered/Resolved]
  - Acute sinusitis [Unknown]

NARRATIVE: CASE EVENT DATE: 20140714
